FAERS Safety Report 10062736 (Version 2)
Quarter: 2014Q2

REPORT INFORMATION
  Report Type: Report from Study
  Country: FR (occurrence: FR)
  Receive Date: 20140407
  Receipt Date: 20140626
  Transmission Date: 20141212
  Serious: Yes (Death, Hospitalization)
  Sender: FDA-Public Use
  Company Number: FR-GLAXOSMITHKLINE-B0981753A

PATIENT
  Age: 43 Year
  Sex: Female
  Weight: 109 kg

DRUGS (5)
  1. ZANAMIVIR [Suspect]
     Indication: H1N1 INFLUENZA
     Route: 042
     Dates: start: 20140221, end: 20140226
  2. OSELTAMIVIR [Concomitant]
     Indication: H1N1 INFLUENZA
     Dosage: 30MG UNKNOWN
     Route: 048
  3. TIENAM [Concomitant]
     Dosage: 1500MG PER DAY
     Route: 042
     Dates: start: 20140301, end: 20140305
  4. VANCOMYCINE [Concomitant]
     Dosage: 1500MG PER DAY
     Route: 042
     Dates: start: 20140301, end: 20140306
  5. HYDROCORTISONE HEMISUCCINATE [Concomitant]
     Dosage: 200MG PER DAY
     Route: 042
     Dates: start: 20140312, end: 20140313

REACTIONS (4)
  - Candida sepsis [Fatal]
  - Tachypnoea [Fatal]
  - Haemodynamic instability [Fatal]
  - Pulmonary arterial hypertension [Fatal]
